FAERS Safety Report 5624074-5 (Version None)
Quarter: 2008Q1

REPORT INFORMATION
  Report Type: 
  Country: None (occurrence: None)
  Receive Date: 20080213
  Receipt Date: 20071017
  Transmission Date: 20080703
  Serious: No
  Sender: FDA-Public Use
  Company Number: US-KINGPHARMUSA00001-K200701350

PATIENT

DRUGS (2)
  1. EPIPEN [Suspect]
     Dosage: .3 MG, SINGLE
     Dates: start: 20071017, end: 20071017
  2. CENTRUM /00554501/ [Concomitant]
     Indication: MEDICAL DIET
     Route: 048

REACTIONS (7)
  - ACCIDENTAL EXPOSURE [None]
  - EXPIRED DRUG ADMINISTERED [None]
  - INJECTION SITE COLDNESS [None]
  - INJECTION SITE PAIN [None]
  - INJECTION SITE PALLOR [None]
  - INJECTION SITE SWELLING [None]
  - VASOCONSTRICTION [None]
